FAERS Safety Report 9461476 (Version 1)
Quarter: 2013Q3

REPORT INFORMATION
  Report Type: Spontaneous
  Country: US (occurrence: None)
  Receive Date: 20130814
  Receipt Date: 20130814
  Transmission Date: 20140515
  Serious: No
  Sender: FDA-Public Use
  Company Number: None

PATIENT
  Age: 44 Year
  Sex: Female
  Weight: 106.14 kg

DRUGS (6)
  1. TECFIDERA [Suspect]
     Indication: MULTIPLE SCLEROSIS
     Route: 048
     Dates: start: 20130606, end: 20130813
  2. TECFIDERA [Suspect]
     Indication: PROPHYLAXIS
     Route: 048
     Dates: start: 20130606, end: 20130813
  3. SYNTHROID [Concomitant]
  4. GENERESS BIRTH CONTROL [Concomitant]
  5. D 3 [Concomitant]
  6. FISH OIL [Concomitant]

REACTIONS (6)
  - Nausea [None]
  - Vomiting [None]
  - Diarrhoea [None]
  - Constipation [None]
  - Muscle spasms [None]
  - Alopecia [None]
